FAERS Safety Report 9457755 (Version 1)
Quarter: 2013Q3

REPORT INFORMATION
  Report Type: Spontaneous
  Country: US (occurrence: None)
  Receive Date: 20130812
  Receipt Date: 20130812
  Transmission Date: 20140515
  Serious: Yes (Life-Threatening, Hospitalization)
  Sender: FDA-Public Use
  Company Number: None

PATIENT
  Age: 68 Year
  Sex: Male
  Weight: 127.01 kg

DRUGS (1)
  1. XERALTO [Suspect]
     Indication: ATRIAL FIBRILLATION
     Dosage: 1 ONCE DAILY TAKEN BY MOUTH
     Route: 048
     Dates: start: 20130702, end: 20130725

REACTIONS (4)
  - Malaise [None]
  - Faeces discoloured [None]
  - Gastric ulcer haemorrhage [None]
  - Haematochezia [None]
